FAERS Safety Report 21507904 (Version 1)
Quarter: 2022Q4

REPORT INFORMATION
  Report Type: Spontaneous
  Country: FR (occurrence: FR)
  Receive Date: 20221026
  Receipt Date: 20221026
  Transmission Date: 20230113
  Serious: Yes (Hospitalization)
  Sender: FDA-Public Use
  Company Number: None

PATIENT
  Age: 60 Year
  Sex: Female
  Weight: 56 kg

DRUGS (3)
  1. CARBOPLATIN [Suspect]
     Active Substance: CARBOPLATIN
     Indication: Lung neoplasm malignant
     Dosage: UNIT DOSE : 490 MG   , FREQUENCY TIME :  3 WEEKS
     Dates: start: 20220811
  2. PEMETREXED [Suspect]
     Active Substance: PEMETREXED
     Indication: Lung neoplasm malignant
     Dosage: UNIT DOSE :800 MG    , FREQUENCY TIME :  3 WEEKS
     Dates: start: 20220811
  3. KEYTRUDA [Suspect]
     Active Substance: PEMBROLIZUMAB
     Indication: Lung neoplasm malignant
     Dosage: UNIT DOSE : 200 MG   , FREQUENCY TIME :   3 WEEKS , DURATION :  1 DAYS
     Dates: start: 20220811, end: 20220811

REACTIONS (5)
  - Toxic skin eruption [Not Recovered/Not Resolved]
  - Pyrexia [Not Recovered/Not Resolved]
  - Lip oedema [Not Recovered/Not Resolved]
  - Vascular purpura [Not Recovered/Not Resolved]
  - C-reactive protein increased [Not Recovered/Not Resolved]

NARRATIVE: CASE EVENT DATE: 20220822
